FAERS Safety Report 7073282-8 (Version None)
Quarter: 2010Q4

REPORT INFORMATION
  Report Type: 
  Country: None (occurrence: None)
  Receive Date: 20101029
  Receipt Date: 20100520
  Transmission Date: 20110411
  Serious: No
  Sender: FDA-Public Use
  Company Number: A0860626A

PATIENT
  Age: 53 Year
  Sex: Female

DRUGS (4)
  1. ADVAIR DISKUS 100/50 [Suspect]
     Indication: ASTHMA
     Dosage: 1PUFF TWICE PER DAY
     Route: 055
     Dates: start: 20100415
  2. PROAIR HFA [Concomitant]
  3. ALBUTEROL [Concomitant]
  4. LACTULOSE [Concomitant]

REACTIONS (5)
  - BRONCHITIS [None]
  - CANDIDIASIS [None]
  - DYSPHONIA [None]
  - EYE DISCHARGE [None]
  - OROPHARYNGEAL PAIN [None]
